FAERS Safety Report 5321119-7 (Version None)
Quarter: 2007Q2

REPORT INFORMATION
  Report Type: 
  Country: None (occurrence: None)
  Receive Date: 20070510
  Receipt Date: 20070430
  Transmission Date: 20071010
  Serious: Yes (Death)
  Sender: FDA-Public Use
  Company Number: US-AMGEN-US217142

PATIENT
  Sex: Male
  Weight: 87.5 kg

DRUGS (21)
  1. ENBREL [Suspect]
     Indication: LUNG DISORDER
     Route: 065
     Dates: start: 20070306, end: 20070320
  2. METHYLPREDNISOLONE SODIUM SUCCINATE [Suspect]
     Route: 065
     Dates: start: 20070321, end: 20070325
  3. MYCOPHENOLATE MOFETIL [Suspect]
     Route: 065
     Dates: start: 20070228, end: 20070325
  4. GANCICLOVIR SODIUM [Concomitant]
     Route: 065
     Dates: start: 20070321, end: 20070325
  5. PANTOPRAZOLE SODIUM [Concomitant]
     Route: 065
     Dates: start: 20070323, end: 20070325
  6. SALMETEROL/FLUTICASONE [Concomitant]
     Route: 065
     Dates: start: 20070226, end: 20070325
  7. TIOTROPIUM BROMIDE [Concomitant]
     Route: 065
     Dates: start: 20070227, end: 20070325
  8. MONTELUKAST SODIUM [Concomitant]
     Route: 065
     Dates: start: 20070226, end: 20070325
  9. MORPHINE SULFATE [Concomitant]
     Route: 065
     Dates: start: 20070324, end: 20070325
  10. ATOVAQUONE [Concomitant]
     Route: 065
     Dates: start: 20070321, end: 20070324
  11. CALCIUM ACETATE [Concomitant]
     Route: 065
     Dates: start: 20070316, end: 20070324
  12. CITALOPRAM HYDROBROMIDE [Concomitant]
     Route: 065
     Dates: start: 20070226, end: 20070324
  13. INSULIN GLARGINE [Concomitant]
     Route: 065
     Dates: start: 20070321, end: 20070324
  14. ACETAMINOPHEN [Concomitant]
     Route: 065
     Dates: start: 20070321, end: 20070324
  15. D50W [Concomitant]
     Route: 065
     Dates: start: 20070226, end: 20070324
  16. BENADRYL [Concomitant]
     Route: 065
     Dates: start: 20070324, end: 20070324
  17. VANCOMYCIN [Concomitant]
     Route: 065
     Dates: start: 20070321, end: 20070323
  18. MEROPENEM [Concomitant]
     Route: 065
     Dates: start: 20070323, end: 20070325
  19. VORICONAZOLE [Concomitant]
     Route: 065
     Dates: start: 20070301, end: 20070325
  20. INSULIN ASPART [Concomitant]
     Route: 065
     Dates: start: 20070226
  21. OXYCODONE HCL [Concomitant]
     Route: 065
     Dates: start: 20070226, end: 20070324

REACTIONS (2)
  - RENAL FAILURE [None]
  - RESPIRATORY FAILURE [None]
